FAERS Safety Report 8981514 (Version 1)
Quarter: 2012Q4

REPORT INFORMATION
  Report Type: 
  Country: GB (occurrence: GB)
  Receive Date: 20121221
  Receipt Date: 20121221
  Transmission Date: 20130627
  Serious: Yes (Other)
  Sender: FDA-Public Use
  Company Number: PHHY2012GB113686

PATIENT
  Age: 62 Year
  Sex: Male

DRUGS (3)
  1. ETOPOSIDE [Suspect]
     Indication: SMALL CELL LUNG CANCER STAGE UNSPECIFIED
     Dosage: 200 mg/m2, on day 1
     Route: 042
  2. CARBOPLATIN [Suspect]
     Indication: SMALL CELL LUNG CANCER STAGE UNSPECIFIED
     Route: 042
  3. ETOPOSIDE [Suspect]
     Indication: SMALL CELL LUNG CANCER STAGE UNSPECIFIED
     Dosage: 100 mg/m2, BID
     Route: 048

REACTIONS (11)
  - Small intestinal obstruction [Recovering/Resolving]
  - Abdominal pain upper [Recovering/Resolving]
  - Vomiting [Recovered/Resolved]
  - Abdominal tenderness [Recovering/Resolving]
  - Abdominal distension [Recovering/Resolving]
  - Intestinal ulcer [Recovering/Resolving]
  - Gastrointestinal oedema [Recovering/Resolving]
  - Gastrointestinal necrosis [Recovering/Resolving]
  - Small intestinal ulcer haemorrhage [Recovering/Resolving]
  - Abdominal pain lower [Recovering/Resolving]
  - Small cell lung cancer [Unknown]
